FAERS Safety Report 10421174 (Version 1)
Quarter: 2014Q3

REPORT INFORMATION
  Report Type: Spontaneous
  Country: US (occurrence: US)
  Receive Date: 20140830
  Receipt Date: 20140830
  Transmission Date: 20150326
  Serious: Yes (Hospitalization)
  Sender: FDA-Public Use
  Company Number: US-AUROBINDO-AUR-APL-2014-09142

PATIENT
  Age: 62 Year
  Sex: Female

DRUGS (3)
  1. ALBUTEROL                          /00139501/ [Concomitant]
     Active Substance: ALBUTEROL
     Indication: ASTHMA
  2. SALMETEROL [Concomitant]
     Active Substance: SALMETEROL
     Indication: ASTHMA
     Route: 065
  3. MONTELUKAST [Suspect]
     Active Substance: MONTELUKAST SODIUM
     Indication: ASTHMA
     Dosage: UNK
     Route: 065

REACTIONS (10)
  - Asthma [Recovering/Resolving]
  - Dyspnoea [Recovering/Resolving]
  - Rash pruritic [Recovering/Resolving]
  - Eosinophilia [Recovered/Resolved]
  - Wheezing [Recovering/Resolving]
  - Cough [Recovering/Resolving]
  - Rash maculo-papular [Recovering/Resolving]
  - Allergic granulomatous angiitis [Recovering/Resolving]
  - Breath sounds abnormal [Recovering/Resolving]
  - Cushingoid [Recovering/Resolving]
